FAERS Safety Report 10477673 (Version 1)
Quarter: 2014Q3

REPORT INFORMATION
  Report Type: Spontaneous
  Country: DE (occurrence: None)
  Receive Date: 20140924
  Receipt Date: 20140924
  Transmission Date: 20150326
  Serious: No
  Sender: FDA-Public Use
  Company Number: DE-LHC-2014003

PATIENT
  Age: 80 Year
  Sex: Male

DRUGS (1)
  1. CONOXIA [Suspect]
     Active Substance: OXYGEN
     Indication: INTERSTITIAL LUNG DISEASE
     Dosage: GAS FOR INHALATION,3 LITERS PER MT. FOR 4-6HOURS.
     Dates: start: 20140113

REACTIONS (6)
  - Accidental exposure to product [None]
  - Pain [None]
  - Frostbite [None]
  - Blister [None]
  - Mobility decreased [None]
  - Impaired healing [None]
